FAERS Safety Report 7324831-3 (Version None)
Quarter: 2011Q1

REPORT INFORMATION
  Report Type: 
  Country: None (occurrence: None)
  Receive Date: 20110301
  Receipt Date: 20110217
  Transmission Date: 20110831
  Serious: Yes (Hospitalization)
  Sender: FDA-Public Use
  Company Number: FR-ELI_LILLY_AND_COMPANY-FR201012004592

PATIENT
  Sex: Female
  Weight: 46 kg

DRUGS (4)
  1. ACETAMINOPHEN [Concomitant]
     Dosage: 1 D/F, DAILY (1/D)
     Route: 048
     Dates: start: 20050601
  2. NOVATREX [Concomitant]
     Indication: RHEUMATOID ARTHRITIS
     Dosage: 10 MG, WEEKLY (1/W)
     Route: 048
     Dates: start: 20050601
  3. SPECIAFOLDINE [Concomitant]
     Dosage: 2 D/F, WEEKLY (1/W)
     Route: 048
     Dates: start: 20050601
  4. FORTEO [Suspect]
     Indication: OSTEOPOROSIS
     Dosage: 20 UG, DAILY (1/D)
     Route: 065
     Dates: start: 20100119

REACTIONS (1)
  - HIP ARTHROPLASTY [None]
